FAERS Safety Report 11671786 (Version 2)
Quarter: 2018Q1

REPORT INFORMATION
  Report Type: Report from Study
  Country: US (occurrence: US)
  Receive Date: 20151028
  Receipt Date: 20180116
  Transmission Date: 20180508
  Serious: No
  Sender: FDA-Public Use
  Company Number: PHEH2015US001055

PATIENT
  Sex: Female

DRUGS (2)
  1. HECORIA [Suspect]
     Active Substance: TACROLIMUS
     Indication: RENAL TRANSPLANT
     Dosage: 2 MG, BID
     Route: 048
  2. MYFORTIC [Suspect]
     Active Substance: MYCOPHENOLATE SODIUM
     Indication: RENAL TRANSPLANT
     Dosage: 720 MG, BID
     Route: 048

REACTIONS (5)
  - Malaise [Unknown]
  - Palpitations [Unknown]
  - Dry mouth [Unknown]
  - Dizziness [Unknown]
  - Nausea [Unknown]
